FAERS Safety Report 12916258 (Version 1)
Quarter: 2016Q4

REPORT INFORMATION
  Report Type: Spontaneous
  Country: US (occurrence: US)
  Receive Date: 20161103
  Receipt Date: 20161103
  Transmission Date: 20170207
  Serious: No
  Sender: FDA-Public Use
  Company Number: None

PATIENT
  Age: 48 Year
  Sex: Female
  Weight: 55.35 kg

DRUGS (10)
  1. VITAMIN B [Concomitant]
     Active Substance: VITAMIN B
  2. VITAMIN E [Concomitant]
     Active Substance: .ALPHA.-TOCOPHEROL
  3. ESCITALOPRAM [Suspect]
     Active Substance: ESCITALOPRAM OXALATE
     Indication: DEPRESSION
     Dosage: ?          QUANTITY:1 TABLET(S);?
     Route: 048
     Dates: start: 20160817, end: 20161102
  4. VITAMIN C [Concomitant]
     Active Substance: ASCORBIC ACID
  5. BABY ASPIRIN [Concomitant]
     Active Substance: ASPIRIN
  6. GENERIC CLARITIN [Concomitant]
     Active Substance: LORATADINE
  7. CALCIUM [Concomitant]
     Active Substance: CALCIUM
  8. METHYL FOLATE [Concomitant]
  9. ESCITALOPRAM [Suspect]
     Active Substance: ESCITALOPRAM OXALATE
     Indication: ANXIETY
     Dosage: ?          QUANTITY:1 TABLET(S);?
     Route: 048
     Dates: start: 20160817, end: 20161102
  10. FISH OIL [Concomitant]
     Active Substance: FISH OIL

REACTIONS (2)
  - Food interaction [None]
  - Rash erythematous [None]

NARRATIVE: CASE EVENT DATE: 20161102
